FAERS Safety Report 16382977 (Version 1)
Quarter: 2019Q2

REPORT INFORMATION
  Report Type: Spontaneous
  Country: US (occurrence: US)
  Receive Date: 20190603
  Receipt Date: 20190603
  Transmission Date: 20190711
  Serious: Yes (Hospitalization, Other)
  Sender: FDA-Public Use
  Company Number: US-ALEMBIC PHARMACUETICALS LIMITED-2019SCAL000340

PATIENT

DRUGS (3)
  1. DEXMEDETOMIDINE. [Suspect]
     Active Substance: DEXMEDETOMIDINE
     Indication: SEIZURE
     Dosage: UNK
  2. BUPROPION HYDROCHLORIDE. [Suspect]
     Active Substance: BUPROPION HYDROCHLORIDE
     Indication: DEPRESSION
     Dosage: UNK
  3. FENTANYL HYDROCHLORIDE [Suspect]
     Active Substance: FENTANYL HYDROCHLORIDE
     Indication: SEIZURE
     Dosage: 50 UG/H

REACTIONS (10)
  - Clonus [Recovered/Resolved]
  - Mental status changes [Recovered/Resolved]
  - Status epilepticus [Recovered/Resolved]
  - Heart rate increased [Recovered/Resolved]
  - Respiratory rate increased [Recovered/Resolved]
  - Serotonin syndrome [Recovered/Resolved]
  - Autonomic nervous system imbalance [Recovered/Resolved]
  - Blood pressure increased [Recovered/Resolved]
  - Agitation [Recovered/Resolved]
  - Overdose [Unknown]
